FAERS Safety Report 7643060-7 (Version None)
Quarter: 2011Q3

REPORT INFORMATION
  Report Type: 
  Country: None (occurrence: None)
  Receive Date: 20110728
  Receipt Date: 20110726
  Transmission Date: 20111222
  Serious: Yes (Death, Other)
  Sender: FDA-Public Use
  Company Number: US-PFIZER INC-2011132469

PATIENT
  Age: 62 Year
  Sex: Male

DRUGS (6)
  1. OXYCONTIN [Concomitant]
     Dosage: UNK
  2. LYRICA [Suspect]
     Dosage: 50 MG, 3X/DAY
  3. LORTAB [Concomitant]
  4. LIPITOR [Concomitant]
     Dosage: UNK
  5. LISINOPRIL [Concomitant]
  6. SOMA [Concomitant]
     Dosage: UNK

REACTIONS (3)
  - CEREBROVASCULAR ACCIDENT [None]
  - DEPRESSED LEVEL OF CONSCIOUSNESS [None]
  - SEPSIS [None]
